FAERS Safety Report 14618069 (Version 1)
Quarter: 2018Q1

REPORT INFORMATION
  Report Type: Spontaneous
  Country: US (occurrence: US)
  Receive Date: 20180309
  Receipt Date: 20180309
  Transmission Date: 20180509
  Serious: No
  Sender: FDA-Public Use
  Company Number: None

PATIENT
  Age: 29 Year
  Sex: Male

DRUGS (1)
  1. TENOFOVIR DF TAB 300MG TEVA PHARMACEUTICALS USA [Suspect]
     Active Substance: TENOFOVIR DISOPROXIL FUMARATE

REACTIONS (2)
  - Insomnia [None]
  - Middle insomnia [None]

NARRATIVE: CASE EVENT DATE: 20180308
